FAERS Safety Report 4922588-4 (Version None)
Quarter: 2006Q1

REPORT INFORMATION
  Report Type: 
  Country: None (occurrence: None)
  Receive Date: 20060224
  Receipt Date: 20060207
  Transmission Date: 20060701
  Serious: Yes (Hospitalization)
  Sender: FDA-Public Use
  Company Number: JP-JPN-A200600494

PATIENT
  Age: 79 Year
  Sex: Female

DRUGS (3)
  1. VALTREX [Suspect]
     Indication: HERPES ZOSTER
     Dosage: 1000MG THREE TIMES PER DAY
     Route: 048
     Dates: start: 20051227, end: 20051231
  2. LOXONIN [Concomitant]
     Indication: NEURALGIA
     Dosage: 120MG PER DAY
     Route: 048
     Dates: start: 20051227
  3. METHYLCOBAL [Concomitant]
     Indication: NEUROPATHY PERIPHERAL
     Dosage: 3U PER DAY
     Route: 048
     Dates: start: 20051227

REACTIONS (6)
  - BLOOD CREATININE INCREASED [None]
  - BLOOD UREA INCREASED [None]
  - DECREASED APPETITE [None]
  - HEADACHE [None]
  - NAUSEA [None]
  - RENAL FAILURE ACUTE [None]
